FAERS Safety Report 13088791 (Version 1)
Quarter: 2017Q1

REPORT INFORMATION
  Report Type: Spontaneous
  Country: CH (occurrence: CH)
  Receive Date: 20170105
  Receipt Date: 20170105
  Transmission Date: 20170428
  Serious: Yes (Hospitalization, Other)
  Sender: FDA-Public Use
  Company Number: PHHY2016CH181239

PATIENT
  Age: 38 Year
  Sex: Female
  Weight: 90 kg

DRUGS (12)
  1. NOVORAPID [Concomitant]
     Active Substance: INSULIN ASPART
     Indication: TYPE 2 DIABETES MELLITUS
     Dosage: UNK
     Route: 065
     Dates: start: 20160812
  2. REMERON [Concomitant]
     Active Substance: MIRTAZAPINE
     Indication: DEPRESSION
     Dosage: 15 MG, QD
     Route: 065
     Dates: end: 20160815
  3. PERINDOPRIL ARGININE [Suspect]
     Active Substance: PERINDOPRIL ARGININE
     Indication: HYPERTENSION
     Dosage: 5 MG, QD
     Route: 065
     Dates: end: 20160810
  4. ISOPHANE INSULIN [Concomitant]
     Active Substance: INSULIN NOS
     Indication: TYPE 2 DIABETES MELLITUS
     Dosage: 8 IU, QD
     Route: 065
     Dates: start: 201608
  5. MEPHAMESON [Concomitant]
     Active Substance: DEXAMETHASONE
     Indication: NEONATAL RESPIRATORY DISTRESS SYNDROME PROPHYLAXIS
     Dosage: 18 MG, UNK (12 MG ON 11 AUG 2016 AND 6 MG ON 12 AUG 2016)
     Route: 065
     Dates: start: 20160811
  6. FORTECORTIN [Concomitant]
     Active Substance: DEXAMETHASONE
     Indication: NEONATAL RESPIRATORY DISTRESS SYNDROME PROPHYLAXIS
     Dosage: UNK
     Route: 065
     Dates: start: 20160810
  7. TRANDATE [Concomitant]
     Active Substance: LABETALOL HYDROCHLORIDE
     Indication: TYPE 2 DIABETES MELLITUS
     Dosage: 300 MG, TID
     Route: 065
     Dates: start: 20160810
  8. METFORMINE [Concomitant]
     Active Substance: METFORMIN HYDROCHLORIDE
     Indication: TYPE 2 DIABETES MELLITUS
     Dosage: 1500 MG, UNK
     Dates: end: 20160812
  9. REDORMIN [Concomitant]
     Indication: DEPRESSION
     Dosage: 250 MG, QD
     Route: 065
     Dates: end: 20160815
  10. TRILEPTAL [Suspect]
     Active Substance: OXCARBAZEPINE
     Indication: EPILEPSY
     Dosage: 300 MG, BID
     Route: 065
  11. TEGRETOL [Suspect]
     Active Substance: CARBAMAZEPINE
     Indication: EPILEPSY
     Dosage: 400 MG, BID
     Route: 065
  12. EFEXOR [Concomitant]
     Active Substance: VENLAFAXINE HYDROCHLORIDE
     Indication: DEPRESSION
     Dosage: 75 MG, QD
     Route: 065
     Dates: start: 20160815

REACTIONS (3)
  - Hypertensive crisis [Unknown]
  - Exposure during pregnancy [Unknown]
  - Pre-eclampsia [Unknown]

NARRATIVE: CASE EVENT DATE: 201602
